FAERS Safety Report 8485451-0 (Version None)
Quarter: 2012Q3

REPORT INFORMATION
  Report Type: 
  Country: None (occurrence: None)
  Receive Date: 20120703
  Receipt Date: 20120625
  Transmission Date: 20120928
  Serious: Yes (Other)
  Sender: FDA-Public Use
  Company Number: US-ROCHE-791163

PATIENT
  Sex: Female
  Weight: 61.29 kg

DRUGS (2)
  1. ACCUTANE [Suspect]
     Indication: ACNE
     Route: 048
     Dates: start: 20030212, end: 20030701
  2. ORTHO TRI-CYCLEN [Concomitant]

REACTIONS (7)
  - DRY SKIN [None]
  - INFLAMMATORY BOWEL DISEASE [None]
  - DEPRESSION [None]
  - STRESS [None]
  - IRRITABLE BOWEL SYNDROME [None]
  - LIP DRY [None]
  - CROHN'S DISEASE [None]
